FAERS Safety Report 5432233-X (Version None)
Quarter: 2007Q3

REPORT INFORMATION
  Report Type: 
  Country: None (occurrence: None)
  Receive Date: 20070731
  Receipt Date: 20070517
  Transmission Date: 20080115
  Serious: No
  Sender: FDA-Public Use
  Company Number: US200705004824

PATIENT
  Age: 53 Year
  Sex: Male

DRUGS (5)
  1. BYETTA [Suspect]
     Indication: TYPE 2 DIABETES MELLITUS
     Dosage: 5 UG, 2/D, SUBCUTANEOUS; 10 UG, 2/D,  SUBCUTANEOUS
     Route: 058
     Dates: start: 20070401, end: 20070509
  2. BYETTA [Suspect]
     Indication: TYPE 2 DIABETES MELLITUS
     Dosage: 5 UG, 2/D, SUBCUTANEOUS; 10 UG, 2/D,  SUBCUTANEOUS
     Route: 058
     Dates: start: 20070510
  3. EXENATIDE PEN, DISPOSABLE DIVICE (EXENATIDE PEN) PEN DISPOSABLE [Concomitant]
  4. ADVICOR [Concomitant]
  5. MULTIVITAMIN [Concomitant]

REACTIONS (1)
  - BLOOD URINE PRESENT [None]
